FAERS Safety Report 7759850-6 (Version None)
Quarter: 2011Q3

REPORT INFORMATION
  Report Type: 
  Country: None (occurrence: None)
  Receive Date: 20110915
  Receipt Date: 20110831
  Transmission Date: 20111222
  Serious: Yes (Hospitalization)
  Sender: FDA-Public Use
  Company Number: JP-20110030

PATIENT
  Age: 69 Year
  Sex: Male

DRUGS (3)
  1. (LIPIODOL ULTRA FLUIDE) (ETHIODIZED OIL) [Suspect]
     Indication: THERAPEUTIC EMBOLISATION
     Route: 013
     Dates: start: 20081001, end: 20081001
  2. GELPART (GELATINE) [Suspect]
     Indication: THERAPEUTIC EMBOLISATION
     Route: 013
     Dates: start: 20081001, end: 20081001
  3. CISPLATIN [Suspect]
     Indication: THERAPEUTIC EMBOLISATION
     Route: 013

REACTIONS (3)
  - SKIN ULCER [None]
  - OFF LABEL USE [None]
  - PURPURA [None]
